FAERS Safety Report 8829742 (Version 1)
Quarter: 2012Q4

REPORT INFORMATION
  Report Type: Spontaneous
  Country: US (occurrence: None)
  Receive Date: 20121005
  Receipt Date: 20121005
  Transmission Date: 20130627
  Serious: No
  Sender: FDA-Public Use
  Company Number: None

PATIENT
  Age: 24 Year
  Sex: Male

DRUGS (1)
  1. ZELBORAF [Suspect]
     Dosage: 4 TABS Q 12 H PO
     Route: 048

REACTIONS (3)
  - Nausea [None]
  - Vomiting [None]
  - Decreased appetite [None]
